FAERS Safety Report 7514617-9 (Version None)
Quarter: 2011Q2

REPORT INFORMATION
  Report Type: 
  Country: None (occurrence: None)
  Receive Date: 20110520
  Receipt Date: 20101014
  Transmission Date: 20111010
  Serious: Yes (Other)
  Sender: FDA-Public Use
  Company Number: WWISSUE-516

PATIENT
  Sex: Female

DRUGS (1)
  1. PREDNISONE TAB [Suspect]
     Dates: start: 20090101

REACTIONS (3)
  - HYPERTENSION [None]
  - DRUG HYPERSENSITIVITY [None]
  - HEART RATE INCREASED [None]
